FAERS Safety Report 14339428 (Version 2)
Quarter: 2018Q1

REPORT INFORMATION
  Report Type: Spontaneous
  Country: GB (occurrence: GB)
  Receive Date: 20171230
  Receipt Date: 20180319
  Transmission Date: 20180509
  Serious: Yes (Disabling, Other)
  Sender: FDA-Public Use
  Company Number: GB-AUROBINDO-AUR-APL-2017-47978

PATIENT
  Age: 30 Year
  Sex: Male
  Weight: 80.73 kg

DRUGS (4)
  1. DOVOBET [Concomitant]
     Active Substance: BETAMETHASONE\CALCIPOTRIENE
     Indication: PRODUCT USED FOR UNKNOWN INDICATION
     Dosage: 1 DF, APPLY AT NIGHT
     Dates: start: 20170928
  2. CETIRIZINE FILM COATED TABLET [Suspect]
     Active Substance: CETIRIZINE HYDROCHLORIDE
     Indication: PSORIASIS
     Dosage: 10 MG, UNK
     Route: 048
     Dates: start: 20170928, end: 20171129
  3. SERTRALINE [Concomitant]
     Active Substance: SERTRALINE HYDROCHLORIDE
     Indication: PRODUCT USED FOR UNKNOWN INDICATION
     Dosage: 50 MG, AS ADVISED BY CONSULTANT
     Dates: start: 20171120
  4. DIPROSALIC [Concomitant]
     Active Substance: BETAMETHASONE DIPROPIONATE
     Indication: PRODUCT USED FOR UNKNOWN INDICATION
     Dosage: 2 DF, UNK
     Dates: start: 20170928

REACTIONS (1)
  - Acute psychosis [Recovered/Resolved]

NARRATIVE: CASE EVENT DATE: 20171129
